FAERS Safety Report 8426806-X (Version None)
Quarter: 2012Q2

REPORT INFORMATION
  Report Type: 
  Country: None (occurrence: None)
  Receive Date: 20120601
  Receipt Date: 20120522
  Transmission Date: 20120825
  Serious: Yes (Other)
  Sender: FDA-Public Use
  Company Number: 2012SP021653

PATIENT
  Sex: Female

DRUGS (3)
  1. PEG-INTRON [Suspect]
     Indication: HEPATITIS C
     Dates: start: 20120328
  2. RIBAVIRIN [Suspect]
     Indication: HEPATITIS C
     Dates: start: 20120328
  3. SUBOXONE [Concomitant]

REACTIONS (11)
  - BRONCHITIS [None]
  - DEPRESSION [None]
  - LOSS OF CONSCIOUSNESS [None]
  - ANGER [None]
  - ABDOMINAL DISTENSION [None]
  - INCORRECT DOSE ADMINISTERED [None]
  - EMOTIONAL DISORDER [None]
  - ALCOHOL USE [None]
  - INJECTION SITE RASH [None]
  - RASH PRURITIC [None]
  - SWELLING FACE [None]
